FAERS Safety Report 16409647 (Version 3)
Quarter: 2019Q3

REPORT INFORMATION
  Report Type: Spontaneous
  Country: US (occurrence: US)
  Receive Date: 20190610
  Receipt Date: 20190823
  Transmission Date: 20191004
  Serious: No
  Sender: FDA-Public Use
  Company Number: US-PFIZER INC-2018488785

PATIENT
  Age: 67 Year
  Sex: Female

DRUGS (1)
  1. SKELAXIN [Suspect]
     Active Substance: METAXALONE
     Indication: CHRONIC DISEASE
     Dosage: UNK

REACTIONS (3)
  - Scoliosis [Unknown]
  - Product use in unapproved indication [Unknown]
  - Off label use [Unknown]
